FAERS Safety Report 6529407-3 (Version None)
Quarter: 2010Q1

REPORT INFORMATION
  Report Type: 
  Country: None (occurrence: None)
  Receive Date: 20100107
  Receipt Date: 20091231
  Transmission Date: 20100710
  Serious: No
  Sender: FDA-Public Use
  Company Number: US-BAYER-201010078NA

PATIENT
  Age: 52 Year
  Sex: Female

DRUGS (2)
  1. CLIMARA [Suspect]
     Indication: DRUG USE FOR UNKNOWN INDICATION
     Dosage: UNIT DOSE: 1 DF
     Route: 062
     Dates: start: 20080901
  2. CLIMARA [Suspect]
     Route: 062
     Dates: start: 20090101, end: 20090101

REACTIONS (5)
  - BACK PAIN [None]
  - LETHARGY [None]
  - PAIN IN EXTREMITY [None]
  - POOR QUALITY SLEEP [None]
  - SINUS TACHYCARDIA [None]
